FAERS Safety Report 5945669-5 (Version None)
Quarter: 2008Q4

REPORT INFORMATION
  Report Type: 
  Country: None (occurrence: None)
  Receive Date: 20081107
  Receipt Date: 20081103
  Transmission Date: 20090506
  Serious: Yes (Death)
  Sender: FDA-Public Use
  Company Number: GR-PFIZER INC-2008092711

PATIENT
  Sex: Male

DRUGS (1)
  1. XANAX [Suspect]
     Route: 048

REACTIONS (1)
  - ROAD TRAFFIC ACCIDENT [None]
